FAERS Safety Report 8403641-X (Version None)
Quarter: 2012Q2

REPORT INFORMATION
  Report Type: 
  Country: None (occurrence: None)
  Receive Date: 20120601
  Receipt Date: 20080626
  Transmission Date: 20120825
  Serious: Yes (Death, Hospitalization, Other)
  Sender: FDA-Public Use
  Company Number: US-ACTELION-A-NJ2008-29457

PATIENT

DRUGS (7)
  1. TRACLEER [Suspect]
     Indication: PULMONARY ARTERIAL HYPERTENSION
     Dosage: UNK
     Route: 048
     Dates: start: 20030523
  2. BETA BLOCKING AGENTS [Concomitant]
  3. FUROSEMIDE [Concomitant]
  4. ASPIRIN [Concomitant]
  5. SILDENAFIL [Concomitant]
  6. SIMVASTATIN [Concomitant]
     Dosage: UNK
     Dates: start: 20080101
  7. SPIRONOLACTONE [Concomitant]

REACTIONS (17)
  - ACUTE HEPATIC FAILURE [None]
  - RESPIRATORY FAILURE [None]
  - PERICARDIAL EFFUSION [None]
  - MASTECTOMY [None]
  - HYPOGLYCAEMIA [None]
  - SHOCK [None]
  - RENAL FAILURE ACUTE [None]
  - THYROID ADENOMA [None]
  - RIGHT VENTRICULAR FAILURE [None]
  - DRUG DOSE OMISSION [None]
  - TRANSAMINASES INCREASED [None]
  - METABOLIC ACIDOSIS [None]
  - HYPERCOAGULATION [None]
  - DIALYSIS [None]
  - BREAST RECONSTRUCTION [None]
  - BREAST CANCER [None]
  - SEPSIS [None]
